FAERS Safety Report 7582206-6 (Version None)
Quarter: 2011Q2

REPORT INFORMATION
  Report Type: 
  Country: None (occurrence: None)
  Receive Date: 20110622
  Receipt Date: 20110616
  Transmission Date: 20111010
  Serious: Yes (Other)
  Sender: FDA-Public Use
  Company Number: GER/UKI/11/0018742

PATIENT
  Age: 87 Year
  Sex: Female

DRUGS (10)
  1. FUROSEMIDE [Concomitant]
  2. BISOPROLOL FUMARATE [Concomitant]
  3. ASPIRIN [Concomitant]
  4. TERBINAFINE HYDROCHLORIDE [Suspect]
     Indication: INTERTRIGO CANDIDA
     Dosage: 250 MG, 1 IN 1 D. ORAL
     Route: 048
  5. CALCIUM CARBONATE [Concomitant]
  6. OMEPRAZOLE [Concomitant]
  7. WARFARIN SODIUM [Concomitant]
  8. ALENDRONIC ACID [Concomitant]
  9. CANDERSARTAN [Concomitant]
  10. LOPERAMIDE [Concomitant]

REACTIONS (2)
  - NEUTROPHIL COUNT INCREASED [None]
  - ACUTE GENERALISED EXANTHEMATOUS PUSTULOSIS [None]
